FAERS Safety Report 19145800 (Version 1)
Quarter: 2021Q2

REPORT INFORMATION
  Report Type: Report from Study
  Country: GB (occurrence: GB)
  Receive Date: 20210416
  Receipt Date: 20210416
  Transmission Date: 20210717
  Serious: Yes (Life-Threatening, Hospitalization)
  Sender: FDA-Public Use
  Company Number: GB-MYLANLABS-2021M1022767

PATIENT
  Age: 11 Year
  Sex: Female

DRUGS (9)
  1. EPIPEN [Suspect]
     Active Substance: EPINEPHRINE
     Dosage: 10MCG/KG, 2 DOSES
     Route: 030
  2. SALBUTAMOL [Suspect]
     Active Substance: ALBUTEROL
     Indication: ANAPHYLACTIC REACTION
  3. EPINEPHRINE. [Suspect]
     Active Substance: EPINEPHRINE
     Indication: ANAPHYLACTIC REACTION
     Dosage: NEBULISED; 4ML OF 1:1000
     Route: 065
  4. HYDROCORTISONE. [Suspect]
     Active Substance: HYDROCORTISONE
     Indication: ANAPHYLACTIC REACTION
     Route: 042
  5. FLUTICASONE PROPIONATE W/SALMETEROL [Concomitant]
     Active Substance: FLUTICASONE PROPIONATE\SALMETEROL XINAFOATE
     Indication: ASTHMA
     Dosage: FORMULATION: INHALER
     Route: 065
  6. SALINE                             /00075401/ [Concomitant]
     Active Substance: SODIUM CHLORIDE
     Indication: ANAPHYLACTIC REACTION
     Dosage: 500 MILLILITER
     Route: 042
  7. BUSCOPAN [Concomitant]
     Active Substance: BUTYLSCOPOLAMINE BROMIDE
     Indication: ANAPHYLACTIC REACTION
     Route: 065
  8. EPIPEN [Suspect]
     Active Substance: EPINEPHRINE
     Indication: ANAPHYLACTIC REACTION
     Dosage: 300 MICROGRAM
     Route: 030
  9. CHLORPHENAMINE [Concomitant]
     Active Substance: CHLORPHENIRAMINE MALEATE
     Indication: ANAPHYLACTIC REACTION
     Dosage: 5 MILLIGRAM
     Route: 042

REACTIONS (1)
  - Drug ineffective [Unknown]
